FAERS Safety Report 8032656-9 (Version None)
Quarter: 2012Q1

REPORT INFORMATION
  Report Type: 
  Country: None (occurrence: None)
  Receive Date: 20120110
  Receipt Date: 20111122
  Transmission Date: 20120608
  Serious: No
  Sender: FDA-Public Use
  Company Number: US-COVIDIEN/TYCO HEALTHCARE/MALLINCKRODT-T201102737

PATIENT
  Age: 31 Year
  Sex: Male

DRUGS (2)
  1. OPTIRAY 160 [Suspect]
     Indication: COMPUTERISED TOMOGRAM THORAX
     Dosage: UNK, SINGLE
     Route: 042
     Dates: start: 20110708, end: 20110708
  2. ANALGESICS [Concomitant]
     Indication: PAIN

REACTIONS (8)
  - FATIGUE [None]
  - HYPERACUSIS [None]
  - VOMITING [None]
  - PHOTOPHOBIA [None]
  - DIARRHOEA [None]
  - PYREXIA [None]
  - NAUSEA [None]
  - HEADACHE [None]
